FAERS Safety Report 21187579 (Version 2)
Quarter: 2022Q3

REPORT INFORMATION
  Report Type: Spontaneous
  Country: FI (occurrence: FI)
  Receive Date: 20220808
  Receipt Date: 20220817
  Transmission Date: 20221027
  Serious: Yes (Other)
  Sender: FDA-Public Use
  Company Number: FI-JNJFOC-20220801363

PATIENT

DRUGS (1)
  1. CONCERTA [Suspect]
     Active Substance: METHYLPHENIDATE HYDROCHLORIDE
     Indication: Product used for unknown indication
     Route: 042

REACTIONS (2)
  - Substance abuse [Unknown]
  - Off label use [Unknown]

NARRATIVE: CASE EVENT DATE: 20220729
